FAERS Safety Report 5510224-8 (Version None)
Quarter: 2007Q4

REPORT INFORMATION
  Report Type: 
  Country: None (occurrence: None)
  Receive Date: 20071106
  Receipt Date: 20071029
  Transmission Date: 20080405
  Serious: Yes (Other)
  Sender: FDA-Public Use
  Company Number: L07-IND-05721-01

PATIENT
  Age: 55 Year
  Sex: Male

DRUGS (2)
  1. CARBAMAZEPINE [Suspect]
  2. TRICYCLIC ANTIDEPRESSANT [Suspect]

REACTIONS (7)
  - BRADYCARDIA [None]
  - HYPERTENSION [None]
  - HYPOTENSION [None]
  - NODAL RHYTHM [None]
  - PROCEDURAL COMPLICATION [None]
  - TRIGEMINAL NERVE DISORDER [None]
  - VENTRICULAR TACHYCARDIA [None]
